FAERS Safety Report 5953634-7 (Version None)
Quarter: 2008Q4

REPORT INFORMATION
  Report Type: 
  Country: None (occurrence: None)
  Receive Date: 20081114
  Receipt Date: 20081110
  Transmission Date: 20090506
  Serious: Yes (Hospitalization)
  Sender: FDA-Public Use
  Company Number: B0545169A

PATIENT
  Age: 57 Year
  Sex: Female
  Weight: 92 kg

DRUGS (3)
  1. LAPATINIB [Suspect]
     Indication: BREAST CANCER
     Dosage: 1000MG PER DAY
     Route: 048
     Dates: start: 20081015
  2. TRASTUZUMAB [Suspect]
     Indication: BREAST CANCER
     Route: 042
     Dates: start: 20081015
  3. PACLITAXEL [Suspect]
     Indication: BREAST CANCER
     Dosage: 80MGM2 PER DAY
     Route: 042
     Dates: start: 20081016

REACTIONS (2)
  - ASTHENIA [None]
  - HYPOTHYROIDISM [None]
